FAERS Safety Report 7608038-8 (Version None)
Quarter: 2011Q3

REPORT INFORMATION
  Report Type: 
  Country: None (occurrence: None)
  Receive Date: 20110714
  Receipt Date: 20110705
  Transmission Date: 20111222
  Serious: Yes (Other)
  Sender: FDA-Public Use
  Company Number: AU-JNJFOC-20110305744

PATIENT
  Sex: Male

DRUGS (5)
  1. STELARA [Suspect]
     Indication: PRODUCT USED FOR UNKNOWN INDICATION
     Route: 058
     Dates: start: 20101107
  2. STELARA [Suspect]
     Route: 058
     Dates: start: 20110224
  3. STELARA [Suspect]
     Route: 058
     Dates: start: 20100416
  4. WARFARIN SODIUM [Concomitant]
  5. STELARA [Suspect]
     Route: 058
     Dates: start: 20110504

REACTIONS (2)
  - PSORIASIS [None]
  - HERPES ZOSTER [None]
